FAERS Safety Report 7035280-X (Version None)
Quarter: 2010Q4

REPORT INFORMATION
  Report Type: 
  Country: None (occurrence: None)
  Receive Date: 20101007
  Receipt Date: 20101007
  Transmission Date: 20110411
  Serious: Yes (Other)
  Sender: FDA-Public Use
  Company Number: None

PATIENT
  Age: 31 Year
  Sex: Female
  Weight: 52.1637 kg

DRUGS (1)
  1. SUBOXONE [Suspect]
     Indication: DRUG DEPENDENCE
     Dosage: 8-2MG DAILY SL
     Route: 060
     Dates: start: 20101001, end: 20101006

REACTIONS (9)
  - ABNORMAL DREAMS [None]
  - EYE DISORDER [None]
  - FATIGUE [None]
  - HANGOVER [None]
  - MICTURITION URGENCY [None]
  - NIGHTMARE [None]
  - POLLAKIURIA [None]
  - PRODUCT FORMULATION ISSUE [None]
  - URINE OUTPUT INCREASED [None]
